FAERS Safety Report 13156303 (Version 2)
Quarter: 2017Q1

REPORT INFORMATION
  Report Type: Spontaneous
  Country: US (occurrence: US)
  Receive Date: 20170126
  Receipt Date: 20170328
  Transmission Date: 20170428
  Serious: Yes (Hospitalization)
  Sender: FDA-Public Use
  Company Number: US-ELI_LILLY_AND_COMPANY-US201608002246

PATIENT
  Sex: Female

DRUGS (3)
  1. CYMBALTA [Suspect]
     Active Substance: DULOXETINE HYDROCHLORIDE
     Dosage: 30 MG, QD
     Route: 048
  2. CYMBALTA [Suspect]
     Active Substance: DULOXETINE HYDROCHLORIDE
     Dosage: 60 MG, QD
     Route: 048
     Dates: end: 20140505
  3. CYMBALTA [Suspect]
     Active Substance: DULOXETINE HYDROCHLORIDE
     Indication: PRODUCT USED FOR UNKNOWN INDICATION
     Dosage: 20 MG, QD
     Route: 048
     Dates: start: 20130506

REACTIONS (23)
  - Sensory disturbance [Unknown]
  - Depressed mood [Unknown]
  - Libido decreased [Unknown]
  - Lethargy [Unknown]
  - Anxiety [Unknown]
  - Confusional state [Unknown]
  - Pain [Unknown]
  - Photophobia [Unknown]
  - Weight decreased [Unknown]
  - Dysphoria [Unknown]
  - Nausea [Unknown]
  - Insomnia [Unknown]
  - Irritability [Unknown]
  - Dizziness [Unknown]
  - Agitation [Unknown]
  - Fatigue [Unknown]
  - Headache [Unknown]
  - Phonophobia [Unknown]
  - Affect lability [Unknown]
  - Drug withdrawal syndrome [Unknown]
  - Paraesthesia [Unknown]
  - Anhedonia [Unknown]
  - Decreased appetite [Unknown]
